FAERS Safety Report 11104290 (Version 3)
Quarter: 2015Q3

REPORT INFORMATION
  Report Type: Report from Study
  Country: DE (occurrence: DE)
  Receive Date: 20150511
  Receipt Date: 20150813
  Transmission Date: 20151125
  Serious: Yes (Hospitalization)
  Sender: FDA-Public Use
  Company Number: DE-ABBVIE-15K-062-1386266-00

PATIENT
  Age: 56 Year
  Sex: Male
  Weight: 55 kg

DRUGS (5)
  1. HUMIRA [Suspect]
     Active Substance: ADALIMUMAB
     Indication: RHEUMATOID ARTHRITIS
     Route: 058
     Dates: start: 20100108, end: 20140418
  2. PREDNISOLONE. [Concomitant]
     Active Substance: PREDNISOLONE
     Indication: RHEUMATOID ARTHRITIS
     Route: 048
     Dates: start: 20030605
  3. HUMIRA [Suspect]
     Active Substance: ADALIMUMAB
     Route: 058
     Dates: start: 20140509
  4. PREDNISOLONE. [Concomitant]
     Active Substance: PREDNISOLONE
     Route: 048
  5. METHOTREXATE [Concomitant]
     Active Substance: METHOTREXATE
     Indication: RHEUMATOID ARTHRITIS
     Route: 048
     Dates: start: 200404

REACTIONS (8)
  - Ulna fracture [Recovered/Resolved]
  - Peripheral swelling [Unknown]
  - Hand deformity [Unknown]
  - Joint dislocation [Recovered/Resolved]
  - Fall [Recovered/Resolved]
  - Arthralgia [Unknown]
  - Joint destruction [Unknown]
  - Osteoarthritis [Unknown]

NARRATIVE: CASE EVENT DATE: 20140411
